FAERS Safety Report 18300939 (Version 3)
Quarter: 2021Q1

REPORT INFORMATION
  Report Type: Other
  Country: US (occurrence: US)
  Receive Date: 20200923
  Receipt Date: 20210311
  Transmission Date: 20210419
  Serious: Yes (Hospitalization, Disabling)
  Sender: FDA-Public Use
  Company Number: US-ROCHE-2676827

PATIENT
  Age: 54 Year
  Sex: Female
  Weight: 77.18 kg

DRUGS (11)
  1. AMITRIPTYLINE [Concomitant]
     Active Substance: AMITRIPTYLINE
  2. FUROSEMIDE. [Concomitant]
     Active Substance: FUROSEMIDE
  3. DULOXETINE. [Concomitant]
     Active Substance: DULOXETINE
     Route: 048
  4. GABAPENTIN. [Concomitant]
     Active Substance: GABAPENTIN
     Indication: MUSCLE SPASMS
  5. OMEPRAZOLE. [Concomitant]
     Active Substance: OMEPRAZOLE
     Indication: GASTROOESOPHAGEAL REFLUX DISEASE
     Dosage: WITHIN LAST YEAR
  6. TAMSULOSIN [Concomitant]
     Active Substance: TAMSULOSIN
     Dosage: WITHIN THE LAST YEAR
  7. POTASSIUM CHLORIDE. [Concomitant]
     Active Substance: POTASSIUM CHLORIDE
  8. NORCO [Concomitant]
     Active Substance: ACETAMINOPHEN\HYDROCODONE BITARTRATE
  9. BACLOFEN. [Concomitant]
     Active Substance: BACLOFEN
     Indication: MUSCLE SPASMS
     Dosage: WITHIN THE LAST YEAR
  10. METOPROLOL SUCCINATE. [Concomitant]
     Active Substance: METOPROLOL SUCCINATE
     Indication: HYPERTENSION
     Dates: start: 20200822
  11. OCREVUS [Suspect]
     Active Substance: OCRELIZUMAB
     Indication: RELAPSING MULTIPLE SCLEROSIS
     Dosage: ONGOING: NO
     Route: 042
     Dates: start: 20200609, end: 20200623

REACTIONS (13)
  - Condition aggravated [Not Recovered/Not Resolved]
  - Urinary tract infection [Recovered/Resolved]
  - Colitis [Recovered/Resolved]
  - Hypotension [Recovered/Resolved]
  - Sepsis [Recovered/Resolved]
  - Depression [Not Recovered/Not Resolved]
  - Large intestine infection [Unknown]
  - Diarrhoea haemorrhagic [Recovered/Resolved]
  - Vomiting [Recovered/Resolved]
  - Spinal cord infection [Recovered/Resolved]
  - Asthenia [Recovered/Resolved]
  - Thrombosis [Not Recovered/Not Resolved]
  - Dehydration [Recovered/Resolved]

NARRATIVE: CASE EVENT DATE: 20200821
